FAERS Safety Report 8463281-3 (Version None)
Quarter: 2012Q2

REPORT INFORMATION
  Report Type: 
  Country: None (occurrence: None)
  Receive Date: 20120625
  Receipt Date: 20120619
  Transmission Date: 20120825
  Serious: Yes (Hospitalization)
  Sender: FDA-Public Use
  Company Number: US-ALEXION-A201200982

PATIENT
  Sex: Male
  Weight: 83.2 kg

DRUGS (19)
  1. IMDUR [Concomitant]
     Dosage: 30 MG, QD
     Route: 048
  2. PRILOSEC [Concomitant]
     Dosage: 20 MG, QD
  3. CLONIDINE [Concomitant]
     Dosage: 0.3 MG, TID
  4. SOLIRIS [Suspect]
     Indication: HAEMOLYTIC URAEMIC SYNDROME
     Dosage: UNK, MAINTENANCE DOSE
     Route: 042
     Dates: start: 20120531
  5. MIRALAX [Concomitant]
     Dosage: 17 G, QD
     Route: 048
  6. DOXYCYCLINE [Concomitant]
     Dosage: 50 MG, QD
     Dates: end: 20120512
  7. LASIX [Concomitant]
     Dosage: 40 MG, QD
  8. EXFORGE [Concomitant]
     Dosage: 15/160 MG, QD
     Dates: start: 20110929, end: 20120522
  9. HYDRALAZINE HYDROCHLORIDE [Concomitant]
     Dosage: 75 MG, QID
  10. RESTORIL [Concomitant]
     Dosage: 30 MG, PRN
     Route: 048
  11. SOLIRIS [Suspect]
     Dosage: 1200 MG, UNK
     Route: 042
     Dates: start: 20120607
  12. LOPRESSOR [Concomitant]
     Dosage: 75 MG, Q 12 HRS
     Route: 048
  13. KCL-20 [Concomitant]
     Dosage: 20 MEQ, QD
     Route: 048
  14. ZOLOFT P [Concomitant]
     Dosage: 100 MG, QD
     Route: 048
  15. PROCARDIA XL [Concomitant]
     Dosage: 60 MG, BID
  16. KLONOPIN [Concomitant]
     Dosage: 0.5 MG, QD
  17. ATIVAN [Concomitant]
     Dosage: 1 MG, QID
     Route: 048
  18. OXYCODONE HCL [Concomitant]
     Dosage: 5 MG, QD
     Route: 048
  19. PANCREATIC ENZYMES [Concomitant]
     Dosage: 1 TAB WITH MEALS

REACTIONS (4)
  - ABDOMINAL DISTENSION [None]
  - DYSGEUSIA [None]
  - BLOOD CREATININE INCREASED [None]
  - CARDIAC FAILURE CONGESTIVE [None]
